FAERS Safety Report 20227442 (Version 2)
Quarter: 2022Q1

REPORT INFORMATION
  Report Type: Spontaneous
  Country: AT (occurrence: AT)
  Receive Date: 20211224
  Receipt Date: 20220218
  Transmission Date: 20220424
  Serious: Yes (Other)
  Sender: FDA-Public Use
  Company Number: None

PATIENT
  Age: 41 Year
  Sex: Male

DRUGS (5)
  1. ANTI-THYMOCYTE GLOBULIN (RABBIT) NOS [Suspect]
     Active Substance: LAPINE T-LYMPHOCYTE IMMUNE GLOBULIN
     Indication: Immunosuppressant drug therapy
     Dosage: UNK
     Route: 065
  2. PREDNISOLONE [Suspect]
     Active Substance: PREDNISOLONE
     Indication: Immunosuppressant drug therapy
     Dosage: 10 MG/DAY
  3. MYCOPHENOLATE MOFETIL [Suspect]
     Active Substance: MYCOPHENOLATE MOFETIL
     Indication: Immunosuppressant drug therapy
     Dosage: 500 MG/DAY
  4. TACROLIMUS [Suspect]
     Active Substance: TACROLIMUS
     Indication: Immunosuppressant drug therapy
     Dosage: 10-12NG/ML
  5. BELATACEPT [Suspect]
     Active Substance: BELATACEPT
     Indication: Immunosuppressant drug therapy
     Dosage: UNK

REACTIONS (9)
  - Aphthous ulcer [Unknown]
  - Skin papilloma [Unknown]
  - Herpes virus infection [Unknown]
  - Hypertension [Unknown]
  - Eczema [Unknown]
  - Headache [Unknown]
  - Leukopenia [Unknown]
  - Alternaria infection [Unknown]
  - Cytomegalovirus infection [Unknown]
